FAERS Safety Report 24789960 (Version 1)
Quarter: 2024Q4

REPORT INFORMATION
  Report Type: Spontaneous
  Country: CN (occurrence: CN)
  Receive Date: 20241230
  Receipt Date: 20241230
  Transmission Date: 20250114
  Serious: Yes (Other)
  Sender: OTSUKA
  Company Number: CN-OTSUKA-2024_034567

PATIENT
  Age: 13 Year
  Sex: Female
  Weight: 82 kg

DRUGS (4)
  1. ABILIFY [Suspect]
     Active Substance: ARIPIPRAZOLE
     Indication: Major depression
     Dosage: 15 MG, QD (AT NIGHT)
     Route: 048
     Dates: start: 20241024, end: 20241112
  2. ABILIFY [Suspect]
     Active Substance: ARIPIPRAZOLE
     Indication: Psychotic symptom
     Dosage: 5 MG, QD (AT NIGHT)
     Route: 048
     Dates: start: 20241022
  3. ARIPIPRAZOLE [Suspect]
     Active Substance: ARIPIPRAZOLE
     Indication: Major depression
     Dosage: 15 MG, QD (AT NIGHT)
     Route: 048
     Dates: start: 20241112, end: 20241220
  4. ARIPIPRAZOLE [Suspect]
     Active Substance: ARIPIPRAZOLE
     Indication: Psychotic symptom

REACTIONS (2)
  - Drug-induced liver injury [Recovering/Resolving]
  - Product use in unapproved indication [Unknown]

NARRATIVE: CASE EVENT DATE: 20241125
